FAERS Safety Report 8011350-4 (Version None)
Quarter: 2011Q4

REPORT INFORMATION
  Report Type: 
  Country: None (occurrence: None)
  Receive Date: 20111228
  Receipt Date: 20111219
  Transmission Date: 20120403
  Serious: Yes (Hospitalization, Disabling)
  Sender: FDA-Public Use
  Company Number: US-JNJFOC-20040705075

PATIENT
  Sex: Male
  Weight: 18.51 kg

DRUGS (5)
  1. CHILDREN'S MOTRIN [Suspect]
     Indication: PYREXIA
     Dates: start: 20030227
  2. ZITHROMAX [Concomitant]
  3. CHILDREN'S MOTRIN [Suspect]
     Indication: COUGH
     Dates: start: 20030227
  4. EYE DROPS [Concomitant]
  5. COUGH SYRUP [Concomitant]

REACTIONS (15)
  - OBLITERATIVE BRONCHIOLITIS [None]
  - CORNEAL OPACITY [None]
  - BRONCHITIS [None]
  - GASTROENTERITIS [None]
  - RESPIRATORY DISTRESS [None]
  - HAEMATOCHEZIA [None]
  - BLOOD URINE PRESENT [None]
  - ABDOMINAL PAIN UPPER [None]
  - RESPIRATORY FAILURE [None]
  - PARALYSIS [None]
  - RHINITIS ALLERGIC [None]
  - LYMPHADENITIS [None]
  - DYSPHAGIA [None]
  - TACHYCARDIA [None]
  - STEVENS-JOHNSON SYNDROME [None]
